FAERS Safety Report 9398125 (Version 1)
Quarter: 2013Q3

REPORT INFORMATION
  Report Type: Spontaneous
  Country: GB (occurrence: None)
  Receive Date: 20130709
  Receipt Date: 20130709
  Transmission Date: 20140515
  Serious: Yes (Other)
  Sender: FDA-Public Use
  Company Number: AUR-APL-2013-05565

PATIENT
  Age: 51 Year
  Sex: Female
  Weight: 136.6 kg

DRUGS (7)
  1. SIMVASTATIN [Suspect]
     Indication: PRODUCT USED FOR UNKNOWN INDICATION
     Dates: start: 20130612
  2. AMOXICILLIN(AMOXICILLIN) [Concomitant]
  3. ATENOLOL(ATENOLOL) [Concomitant]
  4. DOXAZOSIN(DOXAZOSIN) [Concomitant]
  5. ERYTHROMYCIN(ERYTHROMYCIN) [Concomitant]
  6. FUROSEMIDE(FUROSEMIDE) [Concomitant]
  7. LEVOTHYROXINE (LEVOTHYROXINE) [Concomitant]

REACTIONS (3)
  - Swelling face [None]
  - Swollen tongue [None]
  - Oedema mouth [None]
